FAERS Safety Report 6160287-4 (Version None)
Quarter: 2009Q2

REPORT INFORMATION
  Report Type: 
  Country: None (occurrence: None)
  Receive Date: 20090416
  Receipt Date: 20090416
  Transmission Date: 20091009
  Serious: Yes (Life-Threatening, Hospitalization, Other)
  Sender: FDA-Public Use
  Company Number: None

PATIENT
  Age: 9 Year
  Sex: Female
  Weight: 29.4838 kg

DRUGS (1)
  1. PROZAC [Suspect]
     Indication: UNEVALUABLE EVENT
     Dosage: 10 MG. ONCE DAILY PO
     Route: 048
     Dates: start: 20090115, end: 20090415

REACTIONS (3)
  - OFF LABEL USE [None]
  - PERSONALITY CHANGE [None]
  - SUICIDAL IDEATION [None]
